FAERS Safety Report 6931302-2 (Version None)
Quarter: 2010Q3

REPORT INFORMATION
  Report Type: 
  Country: None (occurrence: None)
  Receive Date: 20100818
  Receipt Date: 20100805
  Transmission Date: 20110219
  Serious: Yes (Other)
  Sender: FDA-Public Use
  Company Number: US-ELI_LILLY_AND_COMPANY-US201008002024

PATIENT
  Sex: Female

DRUGS (3)
  1. HUMALOG [Suspect]
     Indication: TYPE 2 DIABETES MELLITUS
     Dosage: UNK, UNK
  2. HUMALOG [Suspect]
     Dosage: UNK, UNK
  3. HUMALOG [Suspect]
     Dosage: UNK, UNK
     Dates: start: 20000101

REACTIONS (3)
  - MALAISE [None]
  - NERVOUSNESS [None]
  - RECTAL CANCER [None]
